FAERS Safety Report 9248116 (Version 2)
Quarter: 2013Q2

REPORT INFORMATION
  Report Type: Spontaneous
  Country: US (occurrence: US)
  Receive Date: 20130423
  Receipt Date: 20130613
  Transmission Date: 20140414
  Serious: No
  Sender: FDA-Public Use
  Company Number: US-PFIZER INC-2013124772

PATIENT
  Age: 58 Year
  Sex: Female
  Weight: 60.77 kg

DRUGS (5)
  1. ADVIL [Suspect]
     Indication: ARTHRALGIA
     Dosage: UNK
     Route: 048
  2. ADVIL [Suspect]
     Indication: PAIN IN EXTREMITY
  3. ADVIL [Suspect]
     Indication: MUSCULOSKELETAL DISCOMFORT
  4. ASPIRIN [Concomitant]
     Dosage: UNK
  5. ALEVE [Concomitant]
     Dosage: UNK

REACTIONS (3)
  - Poor quality drug administered [Unknown]
  - Abdominal discomfort [Unknown]
  - Product container issue [Unknown]
